FAERS Safety Report 9969913 (Version 12)
Quarter: 2015Q1

REPORT INFORMATION
  Report Type: Report from Study
  Country: GB (occurrence: GB)
  Receive Date: 20140306
  Receipt Date: 20150206
  Transmission Date: 20150721
  Serious: Yes (Death, Hospitalization)
  Sender: FDA-Public Use
  Company Number: GB-ROCHE-1338066

PATIENT
  Age: 70 Year
  Sex: Male
  Weight: 70.7 kg

DRUGS (12)
  1. CYCLIZINE [Concomitant]
     Active Substance: CYCLIZINE
     Indication: NAUSEA
     Route: 065
     Dates: start: 20140226
  2. PREDNISOLONE. [Concomitant]
     Active Substance: PREDNISOLONE
     Route: 065
     Dates: start: 20130501
  3. ONDANSETRON [Concomitant]
     Active Substance: ONDANSETRON
     Route: 065
     Dates: start: 20140225, end: 20140312
  4. BENDAMUSTINE [Suspect]
     Active Substance: BENDAMUSTINE
     Indication: NON-HODGKIN^S LYMPHOMA UNSPECIFIED HISTOLOGY INDOLENT
     Dosage: DATE OF LAST DOSE (165 MG) PRIOR TO SAE : 19/SEP/2013.
     Route: 042
     Dates: start: 20130501, end: 20130919
  5. COTRIMOXAZOLE [Concomitant]
     Active Substance: SULFAMETHOXAZOLE\TRIMETHOPRIM
     Route: 065
     Dates: start: 20130501
  6. PARACETAMOL [Concomitant]
     Active Substance: ACETAMINOPHEN
     Route: 065
     Dates: start: 20130501
  7. METOCLOPRAMIDE. [Concomitant]
     Active Substance: METOCLOPRAMIDE
     Indication: PRODUCT USED FOR UNKNOWN INDICATION
     Route: 065
     Dates: start: 20130501
  8. CHLORPHENIRAMINE [Concomitant]
     Active Substance: CHLORPHENIRAMINE
     Route: 065
     Dates: start: 20130501
  9. AMLODIPINE [Concomitant]
     Active Substance: AMLODIPINE BESYLATE
     Indication: HYPERTENSION
  10. RITUXIMAB [Suspect]
     Active Substance: RITUXIMAB
     Indication: NON-HODGKIN^S LYMPHOMA UNSPECIFIED HISTOLOGY INDOLENT
     Dosage: DATE OF MOST RECENT DOSE (VOLUME 500 ML AND DOSE CONCENRATION: 1.38 MG/ML) PRIOR TO SAE : 08/JAN/201
     Route: 042
     Dates: start: 20130501
  11. LANSOPRAZOLE. [Concomitant]
     Active Substance: LANSOPRAZOLE
     Indication: GASTROOESOPHAGEAL REFLUX DISEASE
  12. ACICLOVIR [Concomitant]
     Active Substance: ACYCLOVIR
     Route: 065
     Dates: start: 20130501

REACTIONS (3)
  - Histiocytosis haematophagic [Not Recovered/Not Resolved]
  - Neutropenic sepsis [Recovered/Resolved]
  - Neutropenic sepsis [Fatal]

NARRATIVE: CASE EVENT DATE: 20140121
